FAERS Safety Report 5578843-0 (Version None)
Quarter: 2008Q1

REPORT INFORMATION
  Report Type: 
  Country: None (occurrence: None)
  Receive Date: 20080102
  Receipt Date: 20071130
  Transmission Date: 20080703
  Serious: Yes (Other)
  Sender: FDA-Public Use
  Company Number: GB-BAYER-200717621GPV

PATIENT
  Age: 40 Year
  Sex: Male

DRUGS (1)
  1. KOGENATE [Suspect]
     Indication: FACTOR VIII DEFICIENCY
     Route: 065

REACTIONS (2)
  - FACTOR VIII INHIBITION [None]
  - HAEMORRHAGIC DIATHESIS [None]
